FAERS Safety Report 8489763-6 (Version None)
Quarter: 2012Q3

REPORT INFORMATION
  Report Type: 
  Country: None (occurrence: None)
  Receive Date: 20120705
  Receipt Date: 20120626
  Transmission Date: 20120928
  Serious: Yes (Hospitalization, Other)
  Sender: FDA-Public Use
  Company Number: JP-VERTEX PHARMACEUTICALS INC.-AE-2012-009617

PATIENT
  Age: 80 Year
  Sex: Female

DRUGS (17)
  1. LOXONIN [Concomitant]
     Route: 048
     Dates: start: 20120427
  2. PEGINTERFERON ALFA-2B [Concomitant]
     Indication: HEPATITIS C
     Route: 058
     Dates: start: 20120427
  3. ONEALFA [Concomitant]
     Route: 048
  4. ANTEBATE OINTMENT [Concomitant]
     Route: 061
  5. TELAVIC (TELAPREVIR) [Suspect]
     Indication: HEPATITIS C
     Route: 048
     Dates: start: 20120427, end: 20120517
  6. AMINOMYLAN [Concomitant]
     Route: 048
  7. LANSOPRAZOLE [Concomitant]
     Route: 048
  8. MUCOSTA [Concomitant]
     Route: 048
     Dates: start: 20120427
  9. LIDOMEX [Concomitant]
     Route: 061
  10. REBETOL [Concomitant]
     Indication: HEPATITIS C
     Route: 048
     Dates: start: 20120427, end: 20120524
  11. REBETOL [Concomitant]
     Route: 048
     Dates: start: 20120525
  12. BERIZYM [Concomitant]
     Route: 048
  13. ASPARA-CA [Concomitant]
     Route: 048
  14. DEXALTIN [Concomitant]
     Route: 061
  15. DIOVAN [Concomitant]
     Route: 048
  16. MIROBECT [Concomitant]
     Route: 048
  17. AMLODIPINE [Concomitant]
     Route: 048

REACTIONS (3)
  - ANAEMIA [None]
  - PANCREATITIS [None]
  - RENAL IMPAIRMENT [None]
